FAERS Safety Report 21251486 (Version 1)
Quarter: 2022Q3

REPORT INFORMATION
  Report Type: Spontaneous
  Country: GB (occurrence: None)
  Receive Date: 20220825
  Receipt Date: 20220825
  Transmission Date: 20221027
  Serious: Yes (Other)
  Sender: FDA-Public Use
  Company Number: GB-BROWN + BURK(UK) LIMITED-ML2022-04300

PATIENT
  Age: 7 Week
  Sex: Male

DRUGS (2)
  1. AMOXICILLIN [Suspect]
     Active Substance: AMOXICILLIN
     Route: 063
  2. AMOXICILLIN [Suspect]
     Active Substance: AMOXICILLIN
     Indication: Asthma
     Dosage: 500 MG 3 TIMES A DAY
     Route: 063
     Dates: start: 20220804

REACTIONS (5)
  - Crying [Not Recovered/Not Resolved]
  - Cold sweat [Not Recovered/Not Resolved]
  - Body temperature increased [Not Recovered/Not Resolved]
  - Oral candidiasis [Not Recovered/Not Resolved]
  - Diarrhoea [Not Recovered/Not Resolved]

NARRATIVE: CASE EVENT DATE: 20220809
